FAERS Safety Report 12761460 (Version 6)
Quarter: 2016Q4

REPORT INFORMATION
  Report Type: Spontaneous
  Country: US (occurrence: US)
  Receive Date: 20160920
  Receipt Date: 20161011
  Transmission Date: 20170207
  Serious: Yes (Other)
  Sender: FDA-Public Use
  Company Number: US-RECKITT BENCKISER HEALTHCARE INT LIMITED-RB-90560-2016

PATIENT
  Age: 9 Year
  Sex: Female

DRUGS (2)
  1. CHILDRENS MUCINEX NIGHT TIME MULTI-SYMPTOM COLD [Suspect]
     Active Substance: ACETAMINOPHEN\DIPHENHYDRAMINE HYDROCHLORIDE\PHENYLEPHRINE HYDROCHLORIDE
     Indication: COUGH
     Dosage: 2 TEASPOON, SINGLE
     Route: 048
     Dates: start: 20160910
  2. CHILDRENS MUCINEX NIGHT TIME MULTI-SYMPTOM COLD [Suspect]
     Active Substance: ACETAMINOPHEN\DIPHENHYDRAMINE HYDROCHLORIDE\PHENYLEPHRINE HYDROCHLORIDE
     Indication: NASOPHARYNGITIS

REACTIONS (8)
  - Sensation of foreign body [Recovered/Resolved]
  - Cough [Recovered/Resolved]
  - Foreign body [Recovered/Resolved]
  - Throat irritation [Recovered/Resolved]
  - Oropharyngeal pain [Recovered/Resolved]
  - Product contamination physical [Recovered/Resolved]
  - Vomiting [Recovered/Resolved]
  - Product use issue [Recovered/Resolved]

NARRATIVE: CASE EVENT DATE: 201609
